FAERS Safety Report 5128086-X (Version None)
Quarter: 2006Q4

REPORT INFORMATION
  Report Type: 
  Country: None (occurrence: None)
  Receive Date: 20061003
  Receipt Date: 20060518
  Transmission Date: 20070319
  Serious: Yes (Other)
  Sender: FDA-Public Use
  Company Number: 2006BH010173

PATIENT
  Age: 69 Year
  Sex: Male
  Weight: 87 kg

DRUGS (1)
  1. FEIBA VH IMMUNO [Suspect]
     Indication: HAEMORRHAGE CONTROL
     Dosage: 118 G/KG; EVERY DAY; IV
     Route: 011

REACTIONS (2)
  - MYOCARDIAL INFARCTION [None]
  - POST PROCEDURAL COMPLICATION [None]
